FAERS Safety Report 6852959-0 (Version None)
Quarter: 2010Q3

REPORT INFORMATION
  Report Type: 
  Country: None (occurrence: None)
  Receive Date: 20100717
  Receipt Date: 20071124
  Transmission Date: 20110219
  Serious: No
  Sender: FDA-Public Use
  Company Number: US-PFIZER INC-2007101122

PATIENT
  Sex: Female
  Weight: 68 kg

DRUGS (4)
  1. CHANTIX [Suspect]
     Indication: SMOKING CESSATION THERAPY
     Dates: start: 20071101, end: 20071101
  2. ZOLOFT [Concomitant]
     Indication: BIPOLAR DISORDER
  3. KLONOPIN [Concomitant]
     Indication: BIPOLAR DISORDER
  4. RISPERDAL [Concomitant]
     Indication: BIPOLAR DISORDER

REACTIONS (5)
  - BOWEL MOVEMENT IRREGULARITY [None]
  - HEADACHE [None]
  - HYPERSENSITIVITY [None]
  - INSOMNIA [None]
  - NAUSEA [None]
